FAERS Safety Report 16182046 (Version 1)
Quarter: 2019Q2

REPORT INFORMATION
  Report Type: Spontaneous
  Country: US (occurrence: US)
  Receive Date: 20190410
  Receipt Date: 20190410
  Transmission Date: 20190711
  Serious: Yes (Other)
  Sender: FDA-Public Use
  Company Number: US-ELI_LILLY_AND_COMPANY-US201904001624

PATIENT
  Sex: Male

DRUGS (2)
  1. CYRAMZA [Suspect]
     Active Substance: RAMUCIRUMAB
     Indication: OESOPHAGEAL CARCINOMA
     Dosage: 570 MG, 2/M
     Route: 042
     Dates: start: 20170314
  2. CYRAMZA [Suspect]
     Active Substance: RAMUCIRUMAB
     Dosage: 570 MG, 2/M
     Route: 042

REACTIONS (1)
  - Malignant neoplasm progression [Unknown]
